FAERS Safety Report 19259693 (Version 1)
Quarter: 2021Q2

REPORT INFORMATION
  Report Type: Spontaneous
  Country: CO (occurrence: CO)
  Receive Date: 20210514
  Receipt Date: 20210514
  Transmission Date: 20210717
  Serious: Yes (Other)
  Sender: FDA-Public Use
  Company Number: CO-POPULATION COUNCIL-2021TPC000033

PATIENT
  Sex: Female

DRUGS (2)
  1. MICROGYNON [Suspect]
     Active Substance: ETHINYL ESTRADIOL\LEVONORGESTREL ACETATE
     Indication: HEAVY MENSTRUAL BLEEDING
     Route: 048
     Dates: start: 20210211
  2. JADELLE [Suspect]
     Active Substance: LEVONORGESTREL
     Indication: PRODUCT USED FOR UNKNOWN INDICATION
     Route: 059
     Dates: start: 20191026

REACTIONS (3)
  - Product use issue [Unknown]
  - Genital haemorrhage [Unknown]
  - Heavy menstrual bleeding [Not Recovered/Not Resolved]

NARRATIVE: CASE EVENT DATE: 202005
